FAERS Safety Report 5899296-9 (Version None)
Quarter: 2008Q3

REPORT INFORMATION
  Report Type: 
  Country: None (occurrence: None)
  Receive Date: 20080925
  Receipt Date: 20080923
  Transmission Date: 20090109
  Serious: Yes (Other)
  Sender: FDA-Public Use
  Company Number: GB-MERCK-0806GBR00064

PATIENT
  Age: 29 Year
  Sex: Female

DRUGS (3)
  1. TIMOPTIC [Suspect]
     Indication: INTRAOCULAR PRESSURE INCREASED
     Route: 047
  2. APRACLONIDINE [Suspect]
     Route: 065
  3. LATANOPROST [Suspect]
     Route: 065

REACTIONS (3)
  - DRUG INEFFECTIVE [None]
  - TRABECULECTOMY [None]
  - VITRECTOMY [None]
